FAERS Safety Report 14240305 (Version 1)
Quarter: 2017Q4

REPORT INFORMATION
  Report Type: Spontaneous
  Country: US (occurrence: US)
  Receive Date: 20171130
  Receipt Date: 20171130
  Transmission Date: 20180321
  Serious: No
  Sender: FDA-Public Use
  Company Number: US-MYLANLABS-2017M1074452

PATIENT
  Sex: Female
  Weight: 136 kg

DRUGS (1)
  1. LIDOCAINE PATCH [Suspect]
     Active Substance: LIDOCAINE
     Indication: RHEUMATOID ARTHRITIS
     Dosage: UNK
     Route: 061

REACTIONS (3)
  - Product quality issue [Unknown]
  - Off label use [Unknown]
  - Product adhesion issue [Not Recovered/Not Resolved]
